FAERS Safety Report 7366628-4 (Version None)
Quarter: 2011Q1

REPORT INFORMATION
  Report Type: 
  Country: None (occurrence: None)
  Receive Date: 20110310
  Receipt Date: 20110301
  Transmission Date: 20110831
  Serious: Yes (Life-Threatening)
  Sender: FDA-Public Use
  Company Number: TR-1185235

PATIENT
  Age: 54 Year
  Sex: Male
  Weight: 70 kg

DRUGS (5)
  1. SODIUM THIOPENTAL MITSUBISHI [Concomitant]
  2. FLUORESCEIN SODIUM [Suspect]
     Dosage: (INTRAVENOUS BOLUS)
     Route: 040
  3. SEVOFLURANE [Concomitant]
  4. REMIFENTANIL [Concomitant]
  5. ROCURONIUM BROMIDE [Concomitant]

REACTIONS (3)
  - BRADYCARDIA [None]
  - HYPOTENSION [None]
  - ANAPHYLACTIC REACTION [None]
